FAERS Safety Report 5662413-X (Version None)
Quarter: 2008Q1

REPORT INFORMATION
  Report Type: 
  Country: None (occurrence: None)
  Receive Date: 20080313
  Receipt Date: 20080304
  Transmission Date: 20080703
  Serious: Yes (Other)
  Sender: FDA-Public Use
  Company Number: US-JNJFOC-20080301336

PATIENT
  Sex: Female
  Weight: 54.43 kg

DRUGS (1)
  1. ULTRAM [Suspect]
     Indication: PAIN
     Route: 048

REACTIONS (4)
  - ANOVULATORY CYCLE [None]
  - BLOOD FOLLICLE STIMULATING HORMONE INCREASED [None]
  - CONSTIPATION [None]
  - OVARIAN CYST [None]
